FAERS Safety Report 13848432 (Version 1)
Quarter: 2017Q3

REPORT INFORMATION
  Report Type: Spontaneous
  Country: US (occurrence: US)
  Receive Date: 20170809
  Receipt Date: 20170809
  Transmission Date: 20171127
  Serious: No
  Sender: FDA-Public Use
  Company Number: US-PURDUE-USA-2017-0140027

PATIENT
  Age: 51 Year
  Sex: Female

DRUGS (1)
  1. BUTRANS [Suspect]
     Active Substance: BUPRENORPHINE
     Indication: PRODUCT USED FOR UNKNOWN INDICATION
     Dosage: 10 MCG/HR, WEEKLY
     Route: 062
     Dates: start: 20170711

REACTIONS (8)
  - Application site irritation [Recovered/Resolved]
  - Product adhesion issue [Unknown]
  - Drug effect increased [Unknown]
  - Inappropriate schedule of drug administration [Unknown]
  - Somnolence [Unknown]
  - Pruritus [Recovered/Resolved]
  - Application site scab [Recovered/Resolved]
  - Fatigue [Unknown]

NARRATIVE: CASE EVENT DATE: 20170711
